FAERS Safety Report 19608242 (Version 5)
Quarter: 2021Q4

REPORT INFORMATION
  Report Type: Spontaneous
  Country: JP (occurrence: JP)
  Receive Date: 20210726
  Receipt Date: 20211104
  Transmission Date: 20220303
  Serious: Yes (Hospitalization, Other)
  Sender: FDA-Public Use
  Company Number: NVSJ2021JP010888

PATIENT
  Age: 81 Year
  Sex: Male
  Weight: 60 kg

DRUGS (6)
  1. TAFINLAR [Suspect]
     Active Substance: DABRAFENIB MESYLATE
     Indication: Malignant melanoma stage III
     Dosage: 50 UNK, BID
     Route: 048
     Dates: start: 20171025, end: 20171106
  2. TAFINLAR [Suspect]
     Active Substance: DABRAFENIB MESYLATE
     Dosage: 300 MG
     Route: 048
     Dates: start: 201907, end: 201908
  3. MEKINIST [Suspect]
     Active Substance: TRAMETINIB DIMETHYL SULFOXIDE
     Indication: Malignant melanoma stage III
     Dosage: 1.5 MG, QD
     Route: 048
     Dates: start: 20171025, end: 20171106
  4. MEKINIST [Suspect]
     Active Substance: TRAMETINIB DIMETHYL SULFOXIDE
     Dosage: 2 MG
     Route: 048
     Dates: start: 201907, end: 201908
  5. TAPENTADOL HYDROCHLORIDE [Suspect]
     Active Substance: TAPENTADOL HYDROCHLORIDE
     Indication: Pain
     Dosage: 25 MG, BID
     Route: 048
     Dates: start: 20171013, end: 20171106
  6. FAROPENEM SODIUM [Suspect]
     Active Substance: FAROPENEM SODIUM
     Indication: Infection prophylaxis
     Dosage: 200 MG, BID
     Route: 048
     Dates: start: 20171030, end: 20171106

REACTIONS (13)
  - Malignant melanoma stage III [Not Recovered/Not Resolved]
  - Malignant neoplasm progression [Not Recovered/Not Resolved]
  - Metastases to lymph nodes [Not Recovered/Not Resolved]
  - Haemophagocytic lymphohistiocytosis [Unknown]
  - Septic shock [Unknown]
  - Blood pressure decreased [Unknown]
  - Disseminated intravascular coagulation [Recovering/Resolving]
  - Blood pressure decreased [Unknown]
  - Pyrexia [Unknown]
  - Psoas abscess [Unknown]
  - Pain [Unknown]
  - Pyrexia [Recovered/Resolved]
  - Abdominal discomfort [Recovering/Resolving]

NARRATIVE: CASE EVENT DATE: 20171104
